FAERS Safety Report 7912303-4 (Version None)
Quarter: 2011Q4

REPORT INFORMATION
  Report Type: 
  Country: None (occurrence: None)
  Receive Date: 20111114
  Receipt Date: 20111103
  Transmission Date: 20120403
  Serious: Yes (Other)
  Sender: FDA-Public Use
  Company Number: US-BAYER-2011-038267

PATIENT
  Age: 22 Year
  Sex: Female
  Weight: 104 kg

DRUGS (14)
  1. VICODIN [Concomitant]
     Route: 048
  2. YAZ [Suspect]
     Indication: PREMENSTRUAL SYNDROME
  3. ANTIMIGRAINE PREPARATIONS [Concomitant]
     Dosage: UNK
     Dates: start: 20010101
  4. YASMIN [Suspect]
     Indication: CONTRACEPTION
     Dosage: UNK
     Dates: start: 20060101, end: 20080101
  5. IBUPROFEN [Concomitant]
  6. YAZ [Suspect]
     Indication: CONTRACEPTION
     Dosage: UNK
     Dates: start: 20060101, end: 20080101
  7. ASCORBIC ACID [Concomitant]
  8. ALBUTEROL [Concomitant]
     Dosage: MULTI DOSE INHALER
  9. YAZ [Suspect]
     Indication: ACNE
  10. IBUPROFEN (ADVIL) [Concomitant]
  11. BENADRYL [Concomitant]
     Route: 048
  12. ACETAMINOPHEN [Concomitant]
  13. YASMIN [Suspect]
     Indication: ACNE
  14. YASMIN [Suspect]
     Indication: PREMENSTRUAL SYNDROME

REACTIONS (6)
  - CHOLECYSTITIS CHRONIC [None]
  - UNEVALUABLE EVENT [None]
  - IRRITABLE BOWEL SYNDROME [None]
  - CHOLECYSTECTOMY [None]
  - ABDOMINAL DISCOMFORT [None]
  - CHOLELITHIASIS [None]
